FAERS Safety Report 8230319-8 (Version None)
Quarter: 2012Q1

REPORT INFORMATION
  Report Type: 
  Country: None (occurrence: None)
  Receive Date: 20120320
  Receipt Date: 20120305
  Transmission Date: 20120608
  Serious: Yes (Other)
  Sender: FDA-Public Use
  Company Number: JPI-P-020162

PATIENT
  Age: 37 Year
  Sex: Female
  Weight: 72.5755 kg

DRUGS (4)
  1. ZONISAMIDE [Concomitant]
  2. ALBUTEROL [Concomitant]
  3. MONTELUKAST SODIUM [Concomitant]
  4. XYREM [Suspect]
     Indication: NARCOLEPSY
     Dosage: (UNKNOWN), ORAL 7 GM (3.5 GM, 2 IN 1 D), ORAL
     Route: 048
     Dates: start: 20111222

REACTIONS (11)
  - RESTLESS LEGS SYNDROME [None]
  - NECK PAIN [None]
  - NEPHROLITHIASIS [None]
  - PHOTOPHOBIA [None]
  - NAUSEA [None]
  - CYANOSIS [None]
  - HANGOVER [None]
  - ABDOMINAL PAIN [None]
  - CONDITION AGGRAVATED [None]
  - PAIN [None]
  - SLUGGISHNESS [None]
